FAERS Safety Report 6264158 (Version 3)
Quarter: 2014Q3

REPORT INFORMATION
  Report Type: Spontaneous
  Country: US (occurrence: US)
  Receive Date: 20070319
  Receipt Date: 20140812
  Transmission Date: 20150326
  Serious: Yes (Other)
  Sender: FDA-Public Use
  Company Number: PHEH2007US02813

PATIENT
  Age: 62 Year
  Sex: Male

DRUGS (1)
  1. AREDIA [Suspect]
     Active Substance: PAMIDRONATE DISODIUM
     Indication: METASTASES TO BONE
     Dosage: 80 MG, UNK
     Dates: start: 20050908, end: 20051208

REACTIONS (9)
  - Infusion site reaction [Unknown]
  - Abnormal sensation in eye [Unknown]
  - Infusion site swelling [Unknown]
  - Blindness [Not Recovered/Not Resolved]
  - Pyrexia [Unknown]
  - Optic ischaemic neuropathy [Not Recovered/Not Resolved]
  - Chills [Unknown]
  - Visual impairment [Unknown]
  - Eye pain [Unknown]

NARRATIVE: CASE EVENT DATE: 20051012
